FAERS Safety Report 15455798 (Version 2)
Quarter: 2019Q2

REPORT INFORMATION
  Report Type: Spontaneous
  Country: US (occurrence: US)
  Receive Date: 20181002
  Receipt Date: 20190604
  Transmission Date: 20190711
  Serious: Yes (Death, Hospitalization)
  Sender: FDA-Public Use
  Company Number: US-UNITED THERAPEUTICS-UNT-2018-015498

PATIENT
  Age: 82 Year
  Sex: Male
  Weight: 87.98 kg

DRUGS (2)
  1. TYVASO [Suspect]
     Active Substance: TREPROSTINIL
     Indication: PULMONARY HYPERTENSION
     Dosage: 60 ?G, QID
     Dates: start: 20171201
  2. TYVASO [Suspect]
     Active Substance: TREPROSTINIL
     Dosage: 66 ?G, QID

REACTIONS (11)
  - Oxygen saturation decreased [Unknown]
  - Off label use [Unknown]
  - Chest injury [Unknown]
  - Fall [Recovered/Resolved with Sequelae]
  - Death [Fatal]
  - Eye contusion [Unknown]
  - Hypoxia [Unknown]
  - Pulmonary arterial hypertension [Unknown]
  - Joint injury [Unknown]
  - Head injury [Unknown]
  - Syncope [Unknown]

NARRATIVE: CASE EVENT DATE: 20180917
